FAERS Safety Report 11643827 (Version 3)
Quarter: 2015Q4

REPORT INFORMATION
  Report Type: Report from Study
  Country: CA (occurrence: CA)
  Receive Date: 20151020
  Receipt Date: 20151111
  Transmission Date: 20160304
  Serious: Yes (Hospitalization, Other)
  Sender: FDA-Public Use
  Company Number: CA-CELGENE-CAN-2015101311

PATIENT
  Age: 66 Year
  Sex: Male
  Weight: 63.5 kg

DRUGS (22)
  1. POTASSIUM [Concomitant]
     Active Substance: POTASSIUM
     Indication: GENERAL PHYSICAL CONDITION
     Dosage: 5 MILLIGRAM
     Route: 048
     Dates: start: 20150817
  2. ATORVASTATIN [Concomitant]
     Active Substance: ATORVASTATIN
     Indication: PERIPHERAL VASCULAR DISORDER
     Route: 048
     Dates: start: 20150817
  3. PREDNISONE. [Concomitant]
     Active Substance: PREDNISONE
     Indication: PROSTATIC SPECIFIC ANTIGEN
     Route: 048
     Dates: start: 2003
  4. WARFARIN [Concomitant]
     Active Substance: WARFARIN
     Indication: ANGIOPLASTY
     Dosage: 40 MILLIGRAM
     Route: 048
  5. TRAMADOL. [Concomitant]
     Active Substance: TRAMADOL
     Indication: PAIN
     Dosage: 100-200 MG
     Route: 048
     Dates: start: 20150817
  6. ACCURETIC [Concomitant]
     Active Substance: HYDROCHLOROTHIAZIDE\QUINAPRIL HYDROCHLORIDE
     Indication: HYPERTENSION
     Dosage: 20/12.5 MG
     Route: 048
     Dates: start: 20130629
  7. VITAMIN D [Concomitant]
     Active Substance: CHOLECALCIFEROL
     Indication: GENERAL PHYSICAL CONDITION
     Route: 048
     Dates: start: 20150817
  8. CC-10004 [Suspect]
     Active Substance: APREMILAST
     Route: 065
     Dates: start: 20151015
  9. DIDROCAL [Concomitant]
     Active Substance: CALCIUM CARBONATE\ETIDRONATE DISODIUM
     Indication: OSTEOPOROSIS
     Dosage: 20 MILLIGRAM
     Route: 048
     Dates: start: 1995
  10. CC-10004 [Suspect]
     Active Substance: APREMILAST
     Route: 065
     Dates: start: 20151008, end: 20151015
  11. CELEBREX [Concomitant]
     Active Substance: CELECOXIB
     Indication: PROSTATIC SPECIFIC ANTIGEN
     Route: 048
     Dates: start: 20130102, end: 201508
  12. GABAPENTIN. [Concomitant]
     Active Substance: GABAPENTIN
     Indication: PROSTATIC SPECIFIC ANTIGEN
     Dosage: 7.5 MILLIGRAM
     Route: 048
     Dates: start: 20141123
  13. PLAVIX [Concomitant]
     Active Substance: CLOPIDOGREL BISULFATE
     Indication: ANGIOPLASTY
     Dosage: 400 MILLIGRAM
     Route: 048
     Dates: start: 20150817
  14. GLUCOSAMINE [Concomitant]
     Active Substance: GLUCOSAMINE
     Indication: GENERAL PHYSICAL CONDITION
     Route: 048
     Dates: start: 20150817
  15. OMEGA 3 [Concomitant]
     Active Substance: OMEGA-3 FATTY ACIDS
     Indication: GENERAL PHYSICAL CONDITION
     Dosage: 25/225MG
     Route: 048
     Dates: start: 20150817
  16. ARAVA [Concomitant]
     Active Substance: LEFLUNOMIDE
     Indication: PROSTATIC SPECIFIC ANTIGEN
     Route: 048
     Dates: start: 2010
  17. PARIET [Concomitant]
     Active Substance: RABEPRAZOLE SODIUM
     Indication: GASTROOESOPHAGEAL REFLUX DISEASE
     Route: 048
     Dates: start: 20141110
  18. WARFARIN [Concomitant]
     Active Substance: WARFARIN
     Route: 048
  19. LIPITOR [Concomitant]
     Active Substance: ATORVASTATIN CALCIUM
     Indication: PRODUCT USED FOR UNKNOWN INDICATION
     Route: 065
  20. CC-10004 [Suspect]
     Active Substance: APREMILAST
     Indication: PSORIATIC ARTHROPATHY
     Route: 065
     Dates: start: 20110720, end: 20151015
  21. BISOPROLOL [Concomitant]
     Active Substance: BISOPROLOL
     Indication: HYPERTENSION
     Dosage: 200 MILLIGRAM
     Route: 048
     Dates: start: 20141202
  22. LEFLUNOMIDE. [Concomitant]
     Active Substance: LEFLUNOMIDE
     Indication: RHEUMATOID ARTHRITIS
     Route: 065
     Dates: end: 20151104

REACTIONS (3)
  - Pyrexia [Recovered/Resolved]
  - Anaemia [Recovered/Resolved]
  - Vascular pseudoaneurysm [Not Recovered/Not Resolved]

NARRATIVE: CASE EVENT DATE: 20151002
